FAERS Safety Report 24365003 (Version 1)
Quarter: 2024Q3

REPORT INFORMATION
  Report Type: Spontaneous
  Country: RU (occurrence: RU)
  Receive Date: 20240926
  Receipt Date: 20240926
  Transmission Date: 20241016
  Serious: Yes (Death)
  Sender: NOVARTIS
  Company Number: RU-002147023-NVSC2024RU190947

PATIENT
  Age: 42 Year
  Sex: Male

DRUGS (1)
  1. ASCIMINIB [Suspect]
     Active Substance: ASCIMINIB
     Indication: Product used for unknown indication
     Dosage: UNK
     Route: 065
     Dates: end: 2024

REACTIONS (1)
  - Chronic myeloid leukaemia [Fatal]

NARRATIVE: CASE EVENT DATE: 20240101
